APPROVED DRUG PRODUCT: EXSERVAN
Active Ingredient: RILUZOLE
Strength: 50MG
Dosage Form/Route: FILM;ORAL
Application: N212640 | Product #001
Applicant: AQUESTIVE THERAPEUTICS INC
Approved: Nov 22, 2019 | RLD: Yes | RS: No | Type: DISCN